FAERS Safety Report 7630212-5 (Version None)
Quarter: 2011Q3

REPORT INFORMATION
  Report Type: 
  Country: None (occurrence: None)
  Receive Date: 20110722
  Receipt Date: 20110718
  Transmission Date: 20111222
  Serious: Yes (Hospitalization)
  Sender: FDA-Public Use
  Company Number: PHHO2009US06452

PATIENT
  Sex: Male

DRUGS (5)
  1. AFINITOR [Suspect]
     Indication: RENAL CELL CARCINOMA
     Dosage: 10 MG, QD
     Route: 048
     Dates: start: 20061212, end: 20090202
  2. BEVACIZUMAB [Suspect]
     Dosage: 790 MG EVERY 2 WEEKS
     Route: 042
     Dates: start: 20080205, end: 20090216
  3. MELOXICAM [Concomitant]
  4. STEROIDS NOS [Concomitant]
  5. BEVACIZUMAB [Suspect]
     Indication: RENAL CELL CARCINOMA
     Dosage: 920 MG EVERY 2 WEEKS
     Route: 042
     Dates: start: 20061216

REACTIONS (5)
  - DUODENAL ULCER HAEMORRHAGE [None]
  - SYNCOPE [None]
  - HAEMORRHAGIC ANAEMIA [None]
  - RECTAL HAEMORRHAGE [None]
  - HAEMATEMESIS [None]
